FAERS Safety Report 6357521-4 (Version None)
Quarter: 2009Q3

REPORT INFORMATION
  Report Type: 
  Country: None (occurrence: None)
  Receive Date: 20090916
  Receipt Date: 20071231
  Transmission Date: 20100115
  Serious: Yes (Other)
  Sender: FDA-Public Use
  Company Number: US-ASTRAZENECA-2007UW25574

PATIENT
  Age: 40 Year
  Sex: Male
  Weight: 93.4 kg

DRUGS (17)
  1. SEROQUEL [Suspect]
     Indication: BIPOLAR DISORDER
     Route: 048
     Dates: start: 19960101
  2. SEROQUEL [Suspect]
     Dosage: 50-800 MG
     Route: 048
     Dates: start: 19990720
  3. RISPERDAL [Concomitant]
     Dates: start: 19950601, end: 19951201
  4. ZYPREXA [Concomitant]
     Dates: start: 19960101, end: 20041223
  5. HALDOL [Concomitant]
  6. THORAZINE [Concomitant]
     Dates: start: 19950101
  7. ULTRAM [Concomitant]
     Dates: start: 19970710
  8. AMITRIPTYLINE [Concomitant]
     Dates: start: 19980407
  9. NAPROXEN SOD [Concomitant]
     Dates: start: 19980407
  10. WELLBUTRIN SR [Concomitant]
     Dosage: 100-300 MG
     Dates: start: 19980430
  11. NEURONTIN [Concomitant]
     Dosage: 300-600 MG
     Dates: start: 20000804
  12. PREVACID DR [Concomitant]
     Dates: start: 20010116
  13. AMARYL [Concomitant]
     Dosage: 4-8 MG
     Dates: start: 20011229
  14. NEXIUM [Concomitant]
     Dates: start: 20011229
  15. ACTOS [Concomitant]
     Dates: start: 20011229
  16. XANAX [Concomitant]
     Indication: SCHIZOPHRENIA
     Dosage: 1-4 MG
     Dates: start: 20030513
  17. ZOCOR [Concomitant]
     Dosage: 20-40 MG
     Dates: start: 20041206

REACTIONS (10)
  - DIABETES INSIPIDUS [None]
  - DIABETES MELLITUS [None]
  - DIABETES MELLITUS INADEQUATE CONTROL [None]
  - DIABETIC COMA [None]
  - EXTRAPYRAMIDAL DISORDER [None]
  - HYPOGLYCAEMIA [None]
  - MACULOPATHY [None]
  - NEPHROGENIC DIABETES INSIPIDUS [None]
  - TARDIVE DYSKINESIA [None]
  - TYPE 2 DIABETES MELLITUS [None]
